APPROVED DRUG PRODUCT: GRANISETRON HYDROCHLORIDE
Active Ingredient: GRANISETRON HYDROCHLORIDE
Strength: EQ 1MG BASE
Dosage Form/Route: TABLET;ORAL
Application: A090817 | Product #001
Applicant: TARO PHARMACEUTICAL INDUSTRIES LTD
Approved: May 28, 2010 | RLD: No | RS: No | Type: DISCN